FAERS Safety Report 19956669 (Version 1)
Quarter: 2021Q4

REPORT INFORMATION
  Report Type: Spontaneous
  Country: US (occurrence: US)
  Receive Date: 20211014
  Receipt Date: 20211014
  Transmission Date: 20220304
  Serious: Yes (Other)
  Sender: FDA-Public Use
  Company Number: US-ACCORD-242533

PATIENT
  Age: 39 Year
  Sex: Male

DRUGS (2)
  1. METHOTREXATE [Suspect]
     Active Substance: METHOTREXATE
     Indication: Metastases to meninges
     Route: 037
     Dates: start: 201704
  2. ERLOTINIB [Concomitant]
     Active Substance: ERLOTINIB
     Indication: Metastases to meninges
     Dates: start: 201606

REACTIONS (2)
  - Meningitis aseptic [Unknown]
  - Off label use [Unknown]
